FAERS Safety Report 19870006 (Version 1)
Quarter: 2021Q3

REPORT INFORMATION
  Report Type: Spontaneous
  Country: BR (occurrence: BR)
  Receive Date: 20210923
  Receipt Date: 20210923
  Transmission Date: 20211014
  Serious: Yes (Hospitalization, Other)
  Sender: FDA-Public Use
  Company Number: BR-NOVOPROD-847312

PATIENT
  Age: 79 Year
  Sex: Female
  Weight: 52.5 kg

DRUGS (10)
  1. DEPURA [Concomitant]
     Active Substance: CHOLECALCIFEROL
     Dosage: 500 IU (2 DROPS PER DAY)
     Route: 065
  2. EMPAGLIFLOZIN [Concomitant]
     Active Substance: EMPAGLIFLOZIN
     Dosage: 25 MG
     Route: 065
  3. ENALAPRIL [Concomitant]
     Active Substance: ENALAPRIL
     Dosage: 10 MG, QD
     Route: 065
  4. RISEDRONATE [Concomitant]
     Active Substance: RISEDRONATE SODIUM
     Dosage: UNK
     Route: 065
  5. INSULATARD HM [Suspect]
     Active Substance: INSULIN HUMAN
     Indication: TYPE 2 DIABETES MELLITUS
     Dosage: 30 IU, QD(20?0?0?10)
     Route: 065
  6. METFORMIN [Concomitant]
     Active Substance: METFORMIN HYDROCHLORIDE
     Dosage: 1.50 G
     Route: 065
  7. CALCIO [CALCIUM PHOSPHATE] [Concomitant]
     Active Substance: CALCIUM PHOSPHATE
     Dosage: 500 MG, QD
     Route: 065
  8. AMLODIPINE [Concomitant]
     Active Substance: AMLODIPINE BESYLATE
     Dosage: 5 MG (1/2 PILL PER DAY)
     Route: 065
  9. SALBUTAMOL [Concomitant]
     Active Substance: ALBUTEROL
     Dosage: UNK
     Route: 065
  10. SERETIDE [Concomitant]
     Active Substance: FLUTICASONE PROPIONATE\SALMETEROL XINAFOATE
     Dosage: 1 PER DAY
     Route: 065

REACTIONS (6)
  - Glaucoma [Unknown]
  - Hypoglycaemia [Unknown]
  - Visual impairment [Unknown]
  - Hyperglycaemia [Unknown]
  - Cataract operation [Unknown]
  - Retinopathy [Unknown]
